FAERS Safety Report 10979572 (Version 4)
Quarter: 2015Q2

REPORT INFORMATION
  Report Type: Report from Study
  Country: JP (occurrence: JP)
  Receive Date: 20150402
  Receipt Date: 20150528
  Transmission Date: 20150821
  Serious: Yes (Hospitalization, Other)
  Sender: FDA-Public Use
  Company Number: JP-ASTELLAS-2015JP007009

PATIENT
  Age: 58 Year
  Sex: Male

DRUGS (23)
  1. BUP-4 [Concomitant]
     Active Substance: PROPIVERINE
     Indication: HYPERTONIC BLADDER
     Route: 048
     Dates: start: 20150328, end: 20150519
  2. FENTANYL. [Concomitant]
     Active Substance: FENTANYL
     Indication: ANALGESIC THERAPY
     Route: 042
     Dates: start: 20150330, end: 20150330
  3. VOLTAREN [Concomitant]
     Active Substance: DICLOFENAC SODIUM
     Indication: HUMERUS FRACTURE
  4. REBAMIPIDE [Concomitant]
     Active Substance: REBAMIPIDE
     Indication: GASTRITIS PROPHYLAXIS
     Route: 048
     Dates: start: 20150326, end: 20150327
  5. ANAPEINE [Concomitant]
     Active Substance: ROPIVACAINE HYDROCHLORIDE
     Indication: ANALGESIC THERAPY
     Route: 061
     Dates: start: 20150330, end: 20150330
  6. VOLTAREN [Concomitant]
     Active Substance: DICLOFENAC SODIUM
     Indication: ULNA FRACTURE
  7. LOXOPROFEN NA [Concomitant]
     Active Substance: LOXOPROFEN SODIUM
     Indication: ANALGESIC THERAPY
  8. ROPION [Concomitant]
     Active Substance: FLURBIPROFEN AXETIL
     Indication: ANALGESIC THERAPY
     Route: 042
     Dates: start: 20150330, end: 20150330
  9. VOLTAREN [Concomitant]
     Active Substance: DICLOFENAC SODIUM
     Indication: RADIUS FRACTURE
  10. ALDIOXA [Concomitant]
     Active Substance: ALDIOXA
     Indication: GASTRITIS PROPHYLAXIS
     Route: 048
     Dates: start: 20150331, end: 20150420
  11. MIRABEGRON [Suspect]
     Active Substance: MIRABEGRON
     Indication: HYPERTONIC BLADDER
     Dosage: 50 MG, 1 TABLET ONCE DAILY, AFTER THE BREAKFAST
     Route: 048
     Dates: start: 20150313
  12. BETANIS [Suspect]
     Active Substance: MIRABEGRON
     Indication: HYPERTONIC BLADDER
     Route: 048
     Dates: start: 20150129, end: 20150312
  13. VOLTAREN [Concomitant]
     Active Substance: DICLOFENAC SODIUM
     Indication: ANALGESIC THERAPY
     Route: 054
     Dates: start: 20150327, end: 20150410
  14. LOXOPROFEN NA [Concomitant]
     Active Substance: LOXOPROFEN SODIUM
     Indication: ULNA FRACTURE
     Route: 048
     Dates: start: 20150422
  15. REBAMIPIDE [Concomitant]
     Active Substance: REBAMIPIDE
     Route: 048
     Dates: start: 20150422
  16. CEFAMEZIN ? [Concomitant]
     Indication: INFECTION PROPHYLAXIS
     Route: 042
     Dates: start: 20150330, end: 20150403
  17. CARBOCAINE [Concomitant]
     Active Substance: MEPIVACAINE HYDROCHLORIDE
     Indication: ANALGESIC THERAPY
     Route: 061
     Dates: start: 20150330, end: 20150330
  18. BUP-4 [Concomitant]
     Active Substance: PROPIVERINE
     Route: 048
  19. LOXOPROFEN NA [Concomitant]
     Active Substance: LOXOPROFEN SODIUM
     Indication: HUMERUS FRACTURE
     Route: 048
     Dates: start: 20150326, end: 20150327
  20. LOXOPROFEN NA [Concomitant]
     Active Substance: LOXOPROFEN SODIUM
     Indication: INTERVERTEBRAL DISC PROTRUSION
  21. DIPRIVAN [Concomitant]
     Active Substance: PROPOFOL
     Indication: ANALGESIC THERAPY
     Dosage: 115.61 ML, ONCE DAILY
     Route: 042
     Dates: start: 20150330, end: 20150330
  22. PURSENNID                          /00142207/ [Concomitant]
     Active Substance: SENNOSIDES A AND B
     Indication: CONSTIPATION PROPHYLAXIS
     Route: 048
     Dates: start: 20150331, end: 20150331
  23. LOXOPROFEN NA [Concomitant]
     Active Substance: LOXOPROFEN SODIUM
     Indication: RADIUS FRACTURE
     Route: 048
     Dates: start: 20150331, end: 20150420

REACTIONS (4)
  - Ulna fracture [Recovered/Resolved]
  - Intervertebral disc protrusion [Not Recovered/Not Resolved]
  - Radius fracture [Recovered/Resolved]
  - Humerus fracture [Recovered/Resolved]

NARRATIVE: CASE EVENT DATE: 20150326
